FAERS Safety Report 25411347 (Version 1)
Quarter: 2025Q2

REPORT INFORMATION
  Report Type: Spontaneous
  Country: US (occurrence: US)
  Receive Date: 20250609
  Receipt Date: 20250609
  Transmission Date: 20250717
  Serious: No
  Sender: UROGEN PHARMA
  Company Number: US-UROGEN PHARMA LTD.-2025-UGN-000065

PATIENT

DRUGS (3)
  1. JELMYTO [Suspect]
     Active Substance: MITOMYCIN
     Indication: Product used for unknown indication
     Dates: start: 20250402, end: 20250402
  2. JELMYTO [Suspect]
     Active Substance: MITOMYCIN
     Dates: start: 20250409, end: 20250409
  3. JELMYTO [Suspect]
     Active Substance: MITOMYCIN
     Dates: start: 20250416, end: 20250416

REACTIONS (1)
  - Adverse event [Unknown]

NARRATIVE: CASE EVENT DATE: 20250401
